FAERS Safety Report 7720247-6 (Version None)
Quarter: 2011Q3

REPORT INFORMATION
  Report Type: 
  Country: None (occurrence: None)
  Receive Date: 20110831
  Receipt Date: 20110825
  Transmission Date: 20111222
  Serious: Yes (Other)
  Sender: FDA-Public Use
  Company Number: IT-PFIZER INC-2011198594

PATIENT
  Age: 60 Year
  Sex: Male

DRUGS (3)
  1. AVASTIN [Suspect]
     Indication: COLON CANCER
     Dosage: 465 MG, CYCLIC
     Route: 042
     Dates: start: 20100830, end: 20101221
  2. CAMPTOSAR [Suspect]
     Indication: COLON CANCER
     Dosage: 360 MG, CYCLIC
     Route: 042
     Dates: start: 20100830, end: 20110209
  3. FLUOROURACIL [Suspect]
     Indication: COLON CANCER
     Dosage: 5600 MG, CYCLIC
     Route: 042
     Dates: start: 20100830, end: 20110209

REACTIONS (2)
  - EPISTAXIS [None]
  - PROTEINURIA [None]
